FAERS Safety Report 13874258 (Version 2)
Quarter: 2017Q3

REPORT INFORMATION
  Report Type: Spontaneous
  Country: US (occurrence: US)
  Receive Date: 20170816
  Receipt Date: 20170830
  Transmission Date: 20171127
  Serious: Yes (Other)
  Sender: FDA-Public Use
  Company Number: US-LUNDBECK-DKLU2035590

PATIENT
  Age: 70 Year
  Sex: Female

DRUGS (1)
  1. NORTHERA [Suspect]
     Active Substance: DROXIDOPA
     Indication: PRODUCT USED FOR UNKNOWN INDICATION
     Dosage: SCHEDULE C TITRATION COMPLETE (FIXED DOSE ORDER)
     Route: 065
     Dates: start: 20170727

REACTIONS (9)
  - Contusion [Unknown]
  - Fall [Unknown]
  - Loss of consciousness [Unknown]
  - Hypopnoea [Unknown]
  - Confusional state [Unknown]
  - Blood pressure increased [Unknown]
  - Heart rate increased [Unknown]
  - Presyncope [Unknown]
  - Hypoaesthesia [Unknown]

NARRATIVE: CASE EVENT DATE: 20170806
